FAERS Safety Report 6821668-6 (Version None)
Quarter: 2010Q3

REPORT INFORMATION
  Report Type: 
  Country: None (occurrence: None)
  Receive Date: 20100707
  Receipt Date: 20100624
  Transmission Date: 20110219
  Serious: Yes (Other)
  Sender: FDA-Public Use
  Company Number: BR-AMGEN-QUU421811

PATIENT
  Sex: Female
  Weight: 56 kg

DRUGS (3)
  1. ENBREL [Suspect]
     Indication: RHEUMATOID ARTHRITIS
     Route: 058
     Dates: start: 20090301
  2. METHOTREXATE [Concomitant]
     Dosage: DOSE UNKNOWN
     Route: 065
  3. PREDNISONE [Concomitant]
     Dosage: DOSE UNKNOWN
     Route: 065

REACTIONS (3)
  - MUSCLE ATROPHY [None]
  - MYOCARDITIS [None]
  - WEIGHT INCREASED [None]
